FAERS Safety Report 15512753 (Version 1)
Quarter: 2018Q4

REPORT INFORMATION
  Report Type: Spontaneous
  Country: US (occurrence: US)
  Receive Date: 20181016
  Receipt Date: 20181016
  Transmission Date: 20190205
  Serious: No
  Sender: FDA-Public Use
  Company Number: US-AMGEN-USASP2018054670

PATIENT
  Sex: Female

DRUGS (3)
  1. NEULASTA [Suspect]
     Active Substance: PEGFILGRASTIM
     Indication: PRODUCT USED FOR UNKNOWN INDICATION
     Dosage: UNK
     Route: 065
     Dates: start: 2018
  2. CYTOXAN [Concomitant]
     Active Substance: CYCLOPHOSPHAMIDE
     Indication: BREAST CANCER
     Dosage: UNK UNK, CYCLICAL
     Dates: start: 2018
  3. TAXOTERE [Concomitant]
     Active Substance: DOCETAXEL
     Indication: BREAST CANCER
     Dosage: UNK UNK, CYCLICAL
     Dates: start: 2018

REACTIONS (4)
  - Diarrhoea [Unknown]
  - Gait disturbance [Unknown]
  - Bone pain [Not Recovered/Not Resolved]
  - Mouth ulceration [Unknown]

NARRATIVE: CASE EVENT DATE: 2018
